FAERS Safety Report 7492094 (Version 6)
Quarter: 2013Q2

REPORT INFORMATION
  Report Type: Spontaneous
  Country: US (occurrence: US)
  Receive Date: 20100721
  Receipt Date: 20130624
  Transmission Date: 20140414
  Serious: Yes (Hospitalization, Other)
  Sender: FDA-Public Use
  Company Number: US-JNJFOC-20100704619

PATIENT
  Age: 24 Year
  Sex: Female

DRUGS (1)
  1. LEVAQUIN [Suspect]
     Indication: BRONCHITIS
     Route: 048
     Dates: start: 1996, end: 200810

REACTIONS (4)
  - Tenosynovitis stenosans [Not Recovered/Not Resolved]
  - Synovial cyst [Unknown]
  - Tenosynovitis [Unknown]
  - Tenosynovitis stenosans [Recovering/Resolving]
